FAERS Safety Report 14885855 (Version 4)
Quarter: 2018Q3

REPORT INFORMATION
  Report Type: Report from Study
  Country: GR (occurrence: GR)
  Receive Date: 20180512
  Receipt Date: 20180829
  Transmission Date: 20181010
  Serious: Yes (Death, Hospitalization)
  Sender: FDA-Public Use
  Company Number: GR-ROCHE-2119920

PATIENT
  Age: 84 Year
  Sex: Female
  Weight: 96 kg

DRUGS (6)
  1. PRADAXA [Concomitant]
     Active Substance: DABIGATRAN ETEXILATE MESYLATE
     Indication: AORTIC VALVE REPLACEMENT
     Route: 065
     Dates: end: 20180607
  2. LOPRESSOR [Concomitant]
     Active Substance: METOPROLOL TARTRATE
     Indication: HYPERTENSION
     Route: 065
     Dates: end: 20180607
  3. ATEZOLIZUMAB. [Suspect]
     Active Substance: ATEZOLIZUMAB
     Indication: MALIGNANT MELANOMA
     Dosage: MOST RECENT DOSE 840 MG OF ATEZOLIZUMAB PRIOR TO SAE ONSET RECEIVED ON 27 APR 2018
     Route: 042
     Dates: start: 20180427
  4. IMDUR [Concomitant]
     Active Substance: ISOSORBIDE MONONITRATE
     Indication: CARDIAC FAILURE
     Route: 065
     Dates: end: 20180607
  5. BIGER [Concomitant]
     Indication: HYPERTENSION
     Route: 065
     Dates: end: 20180607
  6. COBIMETINIB. [Suspect]
     Active Substance: COBIMETINIB
     Indication: MALIGNANT MELANOMA
     Dosage: MOST RECENT DOSE 60 MG OF COBIMETINIB PRIOR TO SAE ONSET RECEIVED ON 29 APR 2018 AND THERAPY WAS INT
     Route: 048
     Dates: start: 20180427, end: 20180429

REACTIONS (1)
  - Fatigue [Recovered/Resolved]

NARRATIVE: CASE EVENT DATE: 20180429
